FAERS Safety Report 6736191-7 (Version None)
Quarter: 2010Q2

REPORT INFORMATION
  Report Type: 
  Country: None (occurrence: None)
  Receive Date: 20100521
  Receipt Date: 20100514
  Transmission Date: 20101027
  Serious: Yes (Other)
  Sender: FDA-Public Use
  Company Number: US-SANOFI-AVENTIS-2010SA028477

PATIENT
  Age: 75 Year
  Sex: Female

DRUGS (3)
  1. MULTAQ [Suspect]
     Route: 048
  2. COUMADIN [Concomitant]
  3. LISINOPRIL [Concomitant]

REACTIONS (1)
  - BRADYCARDIA [None]
